FAERS Safety Report 16498076 (Version 1)
Quarter: 2019Q2

REPORT INFORMATION
  Report Type: Spontaneous
  Country: IT (occurrence: IT)
  Receive Date: 20190628
  Receipt Date: 20190628
  Transmission Date: 20190711
  Serious: Yes (Hospitalization)
  Sender: FDA-Public Use
  Company Number: PHHY2019IT147159

PATIENT

DRUGS (2)
  1. TRAMETINIB [Suspect]
     Active Substance: TRAMETINIB
     Indication: MALIGNANT MELANOMA
     Dosage: UNK
     Route: 065
     Dates: start: 2019, end: 201906
  2. DABRAFENIB [Suspect]
     Active Substance: DABRAFENIB
     Indication: MALIGNANT MELANOMA
     Dosage: UNK
     Route: 065
     Dates: start: 2019, end: 201906

REACTIONS (3)
  - Orbital oedema [Not Recovered/Not Resolved]
  - Pyrexia [Unknown]
  - Blindness unilateral [Not Recovered/Not Resolved]

NARRATIVE: CASE EVENT DATE: 20190606
